FAERS Safety Report 4708744-9 (Version None)
Quarter: 2005Q2

REPORT INFORMATION
  Report Type: 
  Country: None (occurrence: None)
  Receive Date: 20050629
  Receipt Date: 20050503
  Transmission Date: 20051028
  Serious: No
  Sender: FDA-Public Use
  Company Number: 05P-163-0299853-00

PATIENT
  Age: 44 Year
  Sex: Female

DRUGS (9)
  1. HUMIRA [Suspect]
     Indication: RHEUMATOID ARTHRITIS
     Dosage: 40 MG, 1 IN 2 WK, SUBCUTANEOUS
     Route: 058
     Dates: start: 20040201, end: 20050503
  2. PHENYTOIN SODIUM [Concomitant]
  3. PREDNISONE [Concomitant]
  4. CELECOXIB [Concomitant]
  5. METHOTREXATE SODIUM [Concomitant]
  6. CALCIUM GLUCONATE [Concomitant]
  7. MULTI-VITAMINS [Concomitant]
  8. LEVOTHYROXINE [Concomitant]
  9. B-KOMPLEX ^LECIVA^ [Concomitant]

REACTIONS (3)
  - ARTHROPOD BITE [None]
  - NASOPHARYNGITIS [None]
  - PULMONARY CONGESTION [None]
